FAERS Safety Report 6019707-8 (Version None)
Quarter: 2008Q4

REPORT INFORMATION
  Report Type: 
  Country: None (occurrence: None)
  Receive Date: 20081224
  Receipt Date: 20081218
  Transmission Date: 20090506
  Serious: Yes (Hospitalization)
  Sender: FDA-Public Use
  Company Number: TR-WATSON-2008-07443

PATIENT
  Age: 40 Year
  Sex: Male

DRUGS (1)
  1. FIORINAL WITH CODEINE 50/325/40/30 (WATSON LABORATORIES) [Suspect]
     Indication: DRUG ABUSE
     Dosage: 150 - 200 MG, DAILY
     Route: 048

REACTIONS (1)
  - MANIA [None]
